FAERS Safety Report 7970783-2 (Version None)
Quarter: 2011Q4

REPORT INFORMATION
  Report Type: 
  Country: None (occurrence: None)
  Receive Date: 20111212
  Receipt Date: 20111205
  Transmission Date: 20120403
  Serious: Yes (Life-Threatening)
  Sender: FDA-Public Use
  Company Number: PHEH2011US011193

PATIENT
  Age: 62 Year
  Sex: Female

DRUGS (2)
  1. PREMARIN [Suspect]
     Dosage: UNK
  2. ESTRADERM [Suspect]
     Dosage: UNK
     Route: 062
     Dates: start: 19870101

REACTIONS (2)
  - APPARENT DEATH [None]
  - HOT FLUSH [None]
